FAERS Safety Report 4978076-2 (Version None)
Quarter: 2006Q2

REPORT INFORMATION
  Report Type: 
  Country: None (occurrence: None)
  Receive Date: 20060417
  Receipt Date: 20060403
  Transmission Date: 20061013
  Serious: Yes (Hospitalization)
  Sender: FDA-Public Use
  Company Number: 2006PV011406

PATIENT
  Age: 54 Year
  Sex: Female
  Weight: 106.1417 kg

DRUGS (11)
  1. BYETTA [Suspect]
     Indication: DIABETES MELLITUS NON-INSULIN-DEPENDENT
     Dosage: 5 MCG; BID; SC; SEE IMAGE
     Route: 058
     Dates: start: 20051201, end: 20060201
  2. BYETTA [Suspect]
     Indication: DIABETES MELLITUS NON-INSULIN-DEPENDENT
     Dosage: 5 MCG; BID; SC; SEE IMAGE
     Route: 058
     Dates: start: 20060316
  3. GLUCOPHAGE [Concomitant]
  4. LEVOXYL [Concomitant]
  5. ASPIRIN [Concomitant]
  6. EFFEXOR [Concomitant]
  7. DIOVAN HCT [Concomitant]
  8. REMERON [Concomitant]
  9. ZETIA [Concomitant]
  10. LASIX [Concomitant]
  11. PROVIGIL [Concomitant]

REACTIONS (6)
  - BLOOD GLUCOSE INCREASED [None]
  - CORONARY ARTERY OCCLUSION [None]
  - DEPRESSION [None]
  - ECONOMIC PROBLEM [None]
  - NAUSEA [None]
  - WEIGHT DECREASED [None]
